FAERS Safety Report 7889057-3 (Version None)
Quarter: 2011Q4

REPORT INFORMATION
  Report Type: 
  Country: None (occurrence: None)
  Receive Date: 20111103
  Receipt Date: 20111027
  Transmission Date: 20120403
  Serious: Yes (Hospitalization)
  Sender: FDA-Public Use
  Company Number: DE-UCBSA-042772

PATIENT
  Sex: Male

DRUGS (4)
  1. VALPROIC ACID [Suspect]
  2. KEPPRA [Suspect]
  3. KEPPRA [Suspect]
     Dosage: TOTAL DIALY DOSE: 3000 MG
     Route: 042
  4. VIMPAT [Suspect]

REACTIONS (3)
  - EPILEPSY [None]
  - TRANSAMINASES INCREASED [None]
  - PANCREATIC ENZYMES INCREASED [None]
